FAERS Safety Report 11368268 (Version 1)
Quarter: 2015Q3

REPORT INFORMATION
  Report Type: Spontaneous
  Country: GB (occurrence: None)
  Receive Date: 20150810
  Receipt Date: 20150810
  Transmission Date: 20151125
  Serious: Yes (Other)
  Sender: FDA-Public Use
  Company Number: GB-000048

PATIENT
  Age: 55 Year
  Sex: Female

DRUGS (7)
  1. QVAR (BECLOMETASONE DIPROPIONATE) [Concomitant]
  2. MERCAPTOPURINE (MERCAPTOPURINE) [Suspect]
     Active Substance: MERCAPTOPURINE
     Indication: PRODUCT USED FOR UNKNOWN INDICATION
     Route: 048
     Dates: start: 20150511, end: 20150515
  3. MESALAZINE [Concomitant]
     Active Substance: MESALAMINE
  4. INFLIXIMAB (INFLIXIMAB) [Suspect]
     Active Substance: INFLIXIMAB
     Indication: COLITIS ULCERATIVE
     Route: 051
     Dates: start: 20150313, end: 20150428
  5. SALOFALK /00747601/ )MESALAZINE) [Concomitant]
  6. BUSCOPAN (HYOSCINE BUTYLBROMIDE) (HYOSCINE BUTYLBROMIDE) [Concomitant]
     Active Substance: BUTYLSCOPOLAMINE
  7. PENTASA [Concomitant]
     Active Substance: MESALAMINE

REACTIONS (7)
  - Blood pressure diastolic increased [None]
  - Tinnitus [None]
  - Dizziness [None]
  - Nausea [None]
  - Vertigo [None]
  - Hypersensitivity [None]
  - Dyspnoea [None]
